FAERS Safety Report 10078252 (Version 2)
Quarter: 2014Q2

REPORT INFORMATION
  Report Type: Spontaneous
  Country: US (occurrence: US)
  Receive Date: 20140415
  Receipt Date: 20140529
  Transmission Date: 20141212
  Serious: Yes (Other)
  Sender: FDA-Public Use
  Company Number: US-AMGEN-USASP2014025523

PATIENT
  Sex: Female

DRUGS (1)
  1. PROLIA [Suspect]
     Indication: OSTEOPOROSIS
     Dosage: UNK
     Route: 065
     Dates: start: 201311

REACTIONS (5)
  - Blood calcium decreased [Unknown]
  - Muscle spasms [Recovering/Resolving]
  - Asthenia [Unknown]
  - Pain [Recovering/Resolving]
  - Weight decreased [Unknown]
